FAERS Safety Report 8199570-X (Version None)
Quarter: 2012Q1

REPORT INFORMATION
  Report Type: 
  Country: None (occurrence: None)
  Receive Date: 20120310
  Receipt Date: 20120227
  Transmission Date: 20120608
  Serious: Yes (Other)
  Sender: FDA-Public Use
  Company Number: DE-BRISTOL-MYERS SQUIBB COMPANY-16445090

PATIENT
  Age: 66 Year
  Sex: Male

DRUGS (6)
  1. CYCLOPHOSPHAMIDE [Suspect]
     Indication: MYELODYSPLASTIC SYNDROME
  2. CLOFARABINE [Suspect]
     Indication: MYELODYSPLASTIC SYNDROME
  3. CYTARABINE [Suspect]
     Indication: MYELODYSPLASTIC SYNDROME
  4. CYCLOSPORINE [Suspect]
     Indication: MYELODYSPLASTIC SYNDROME
  5. MYCOPHENOLATE MOFETIL [Suspect]
     Indication: MYELODYSPLASTIC SYNDROME
  6. ANTI-THYMOCYTE GLOBULIN NOS [Suspect]
     Indication: MYELODYSPLASTIC SYNDROME

REACTIONS (4)
  - TRANSAMINASES INCREASED [None]
  - BLOOD BILIRUBIN INCREASED [None]
  - APLASIA [None]
  - PNEUMONIA [None]
